FAERS Safety Report 21575684 (Version 1)
Quarter: 2022Q4

REPORT INFORMATION
  Report Type: Report from Study
  Country: US (occurrence: None)
  Receive Date: 20221110
  Receipt Date: 20221110
  Transmission Date: 20230112
  Serious: No
  Sender: FDA-Public Use
  Company Number: US-ABBVIE-22K-163-4340884-00

PATIENT
  Sex: Male

DRUGS (1)
  1. IMBRUVICA [Suspect]
     Active Substance: IBRUTINIB
     Indication: Chronic lymphocytic leukaemia
     Route: 048
     Dates: start: 201906

REACTIONS (8)
  - Skin haemorrhage [Unknown]
  - Increased tendency to bruise [Unknown]
  - Rash macular [Unknown]
  - Fatigue [Unknown]
  - Skin atrophy [Unknown]
  - Skin fissures [Unknown]
  - Haemorrhagic diathesis [Unknown]
  - Skin laceration [Unknown]
